FAERS Safety Report 15542797 (Version 1)
Quarter: 2018Q4

REPORT INFORMATION
  Report Type: Spontaneous
  Country: US (occurrence: US)
  Receive Date: 20181023
  Receipt Date: 20181023
  Transmission Date: 20190205
  Serious: No
  Sender: FDA-Public Use
  Company Number: US-IPSEN BIOPHARMACEUTICALS, INC.-2018-15736

PATIENT
  Sex: Female

DRUGS (4)
  1. DYSPORT [Suspect]
     Active Substance: ABOBOTULINUMTOXINA
     Indication: SKIN WRINKLING
     Dosage: DOSE : 60 UNITS.
  2. DYSPORT [Suspect]
     Active Substance: ABOBOTULINUMTOXINA
     Indication: SKIN WRINKLING
  3. DYSPORT [Suspect]
     Active Substance: ABOBOTULINUMTOXINA
     Indication: OFF LABEL USE
  4. DYSPORT [Suspect]
     Active Substance: ABOBOTULINUMTOXINA
     Indication: SKIN WRINKLING

REACTIONS (12)
  - Chills [Unknown]
  - Hypoaesthesia [Unknown]
  - Rash [Unknown]
  - Flushing [Unknown]
  - Intentional product use issue [Unknown]
  - Diarrhoea [Unknown]
  - Anxiety [Unknown]
  - Pain [Unknown]
  - Dry mouth [Unknown]
  - Vomiting [Unknown]
  - Nausea [Unknown]
  - Tremor [Unknown]
